FAERS Safety Report 13472288 (Version 3)
Quarter: 2018Q1

REPORT INFORMATION
  Report Type: Report from Study
  Country: JP (occurrence: JP)
  Receive Date: 20170424
  Receipt Date: 20180227
  Transmission Date: 20180508
  Serious: Yes (Hospitalization, Other)
  Sender: FDA-Public Use
  Company Number: JP-GLAXOSMITHKLINE-JP2015JPN140272

PATIENT
  Age: 18 Year
  Sex: Male
  Weight: 59 kg

DRUGS (19)
  1. ADCIRCA [Concomitant]
     Active Substance: TADALAFIL
     Dosage: UNK
     Dates: end: 20150915
  2. ALDACTONE A [Concomitant]
     Active Substance: SPIRONOLACTONE
     Indication: CARDIOVASCULAR EVENT PROPHYLAXIS
     Dosage: UNK
     Dates: end: 20150915
  3. SLOW-K [Concomitant]
     Active Substance: POTASSIUM CHLORIDE
     Indication: PROPHYLAXIS
     Dosage: UNK
     Dates: end: 20150915
  4. FERROMIA (JAPAN) [Concomitant]
     Dosage: UNK
     Dates: end: 20150915
  5. MUCOSTA [Concomitant]
     Active Substance: REBAMIPIDE
     Indication: GASTRITIS PROPHYLAXIS
     Dosage: UNK
     Dates: start: 20141204, end: 20150915
  6. JZOLOFT [Concomitant]
     Active Substance: SERTRALINE HYDROCHLORIDE
     Dosage: UNK
     Dates: end: 20150915
  7. EPOPROSTENOL SODIUM. [Suspect]
     Active Substance: EPOPROSTENOL SODIUM
     Indication: PULMONARY ARTERIAL HYPERTENSION
     Dosage: UNK
     Route: 042
     Dates: start: 20140619, end: 20150915
  8. PHELLOBERIN [Concomitant]
     Active Substance: BERBERINE\GERANIUM
     Dosage: UNK
     Dates: end: 20150915
  9. NEXIUM [Concomitant]
     Active Substance: ESOMEPRAZOLE MAGNESIUM
     Indication: GASTRITIS PROPHYLAXIS
     Dosage: UNK
     Dates: end: 20141203
  10. AMBRISENTAN [Suspect]
     Active Substance: AMBRISENTAN
     Indication: PULMONARY ARTERIAL HYPERTENSION
     Dosage: 10 MG, QD
     Route: 048
     Dates: start: 20140619
  11. ADCIRCA [Concomitant]
     Active Substance: TADALAFIL
     Indication: PULMONARY ARTERIAL HYPERTENSION
     Dosage: 40 MG, 1D
     Dates: start: 20121114, end: 20170407
  12. LAC-B [Concomitant]
     Active Substance: BIFIDOBACTERIUM SPP.
     Dosage: UNK
     Dates: end: 20150915
  13. FLOLAN [Concomitant]
     Active Substance: EPOPROSTENOL SODIUM
     Indication: PULMONARY ARTERIAL HYPERTENSION
     Dosage: UNK
     Route: 042
     Dates: start: 20140212, end: 20140618
  14. REVATIO [Concomitant]
     Active Substance: SILDENAFIL CITRATE
     Indication: PULMONARY ARTERIAL HYPERTENSION
     Dosage: 30 MG, 1D
     Dates: start: 20140507, end: 20170407
  15. REVATIO [Concomitant]
     Active Substance: SILDENAFIL CITRATE
     Dosage: UNK
     Dates: end: 20150915
  16. WYPAX [Concomitant]
     Active Substance: LORAZEPAM
     Dosage: UNK
     Dates: end: 20150915
  17. LOPEMIN [Concomitant]
     Active Substance: LOPERAMIDE HYDROCHLORIDE
     Dosage: UNK
     Dates: end: 20150915
  18. LENDORMIN [Concomitant]
     Active Substance: BROTIZOLAM
     Dosage: UNK
     Dates: end: 20150915
  19. NEXAVAR [Concomitant]
     Active Substance: SORAFENIB
     Indication: PULMONARY ARTERIAL HYPERTENSION
     Dosage: UNK
     Dates: start: 20150901, end: 20150915

REACTIONS (8)
  - Anaemia [Recovering/Resolving]
  - Myocarditis [Recovering/Resolving]
  - Gastrointestinal haemorrhage [Recovering/Resolving]
  - Right ventricular failure [Recovering/Resolving]
  - Right ventricular failure [Recovering/Resolving]
  - Device related infection [Recovering/Resolving]
  - Hypothyroidism [Recovering/Resolving]
  - Device occlusion [Recovered/Resolved]

NARRATIVE: CASE EVENT DATE: 20140809
